FAERS Safety Report 5850988-7 (Version None)
Quarter: 2008Q3

REPORT INFORMATION
  Report Type: 
  Country: None (occurrence: None)
  Receive Date: 20080820
  Receipt Date: 20080813
  Transmission Date: 20090109
  Serious: Yes (Hospitalization)
  Sender: FDA-Public Use
  Company Number: PHHO2006US20102

PATIENT
  Sex: Female
  Weight: 77.7 kg

DRUGS (4)
  1. TASIGNA [Suspect]
     Indication: CHRONIC MYELOID LEUKAEMIA
     Dosage: 400 MG, BID
     Route: 048
     Dates: start: 20061027, end: 20061129
  2. EFFEXOR XR [Concomitant]
     Indication: DEPRESSION
  3. CLARINEX [Concomitant]
     Indication: CHRONIC SINUSITIS
  4. AGRYLIN [Concomitant]

REACTIONS (5)
  - ANGINA PECTORIS [None]
  - CHEST PAIN [None]
  - DYSPNOEA [None]
  - HYPERHIDROSIS [None]
  - NECK PAIN [None]
